FAERS Safety Report 17472029 (Version 2)
Quarter: 2020Q1

REPORT INFORMATION
  Report Type: Spontaneous
  Country: US (occurrence: US)
  Receive Date: 20200228
  Receipt Date: 20200319
  Transmission Date: 20200409
  Serious: Yes (Hospitalization, Other)
  Sender: FDA-Public Use
  Company Number: US-009507513-1812USA007452

PATIENT
  Sex: Male

DRUGS (2)
  1. STERILE DILUENT (WATER) [Suspect]
     Active Substance: WATER
     Indication: PROPHYLAXIS
     Dosage: 0.65 MILLILITER, ONCE, LEFT ARM
     Route: 058
     Dates: start: 20150528, end: 20150528
  2. ZOSTAVAX [Suspect]
     Active Substance: VARICELLA-ZOSTER VIRUS STRAIN OKA/MERCK LIVE ANTIGEN
     Indication: PROPHYLAXIS
     Dosage: .65 MILLILITER
     Route: 058
     Dates: start: 20150528

REACTIONS (11)
  - Herpes zoster [Not Recovered/Not Resolved]
  - Coagulopathy [Unknown]
  - Heart rate irregular [Unknown]
  - Post herpetic neuralgia [Not Recovered/Not Resolved]
  - Blood cholesterol increased [Unknown]
  - Hypertension [Unknown]
  - Seizure [Unknown]
  - Blood disorder [Unknown]
  - Pain [Unknown]
  - Vaccination failure [Unknown]
  - Inflammation [Unknown]

NARRATIVE: CASE EVENT DATE: 20161228
